FAERS Safety Report 4456722-X (Version None)
Quarter: 2004Q3

REPORT INFORMATION
  Report Type: 
  Country: None (occurrence: None)
  Receive Date: 20040921
  Receipt Date: 20040909
  Transmission Date: 20050211
  Serious: Yes (Hospitalization)
  Sender: FDA-Public Use
  Company Number: 04P-087-0264664-00

PATIENT
  Age: 64 Year
  Sex: Male
  Weight: 75 kg

DRUGS (2)
  1. OMNICEF [Suspect]
     Indication: NASOPHARYNGITIS
     Dosage: 100 MG, 3 IN 1 D, PER ORAL
     Route: 048
     Dates: start: 20030727, end: 20030728
  2. PL GRAN [Concomitant]

REACTIONS (3)
  - DRUG ERUPTION [None]
  - GENERALISED ERYTHEMA [None]
  - STOMATITIS [None]
